FAERS Safety Report 16519343 (Version 1)
Quarter: 2019Q3

REPORT INFORMATION
  Report Type: Spontaneous
  Country: US (occurrence: US)
  Receive Date: 20190702
  Receipt Date: 20190702
  Transmission Date: 20191004
  Serious: No
  Sender: FDA-Public Use
  Company Number: US-GALDERMA-US18042235

PATIENT
  Sex: Female

DRUGS (4)
  1. DIFFERIN GEL [Suspect]
     Active Substance: ADAPALENE
     Indication: ROSACEA
     Dosage: 0.1%
     Route: 061
  2. VASELINE PURE [Concomitant]
     Active Substance: PETROLATUM
  3. CERAVE GENTLE CLEANER [Concomitant]
  4. CERAVE MOISTURIZER [Concomitant]
     Active Substance: COSMETICS

REACTIONS (2)
  - Product use in unapproved indication [Recovered/Resolved]
  - Therapeutic response unexpected [Recovered/Resolved]
